FAERS Safety Report 6190535-6 (Version None)
Quarter: 2009Q2

REPORT INFORMATION
  Report Type: 
  Country: None (occurrence: None)
  Receive Date: 20090514
  Receipt Date: 20090507
  Transmission Date: 20091009
  Serious: Yes (Other)
  Sender: FDA-Public Use
  Company Number: PHHY2009CA17629

PATIENT

DRUGS (2)
  1. DIOVAN T30230++HY [Suspect]
     Dosage: UNK
     Dates: end: 20090106
  2. ACE INHIBITOR NOS [Concomitant]

REACTIONS (1)
  - INFARCTION [None]
